FAERS Safety Report 25151775 (Version 3)
Quarter: 2025Q2

REPORT INFORMATION
  Report Type: Report from Study
  Country: US (occurrence: US)
  Receive Date: 20250402
  Receipt Date: 20250418
  Transmission Date: 20250716
  Serious: Yes (Hospitalization)
  Sender: ALNYLAM PHARMACEUTICALS
  Company Number: US-ALNYLAM PHARMACEUTICALS, INC.-ALN-2025-002145

PATIENT

DRUGS (2)
  1. GIVLAARI [Suspect]
     Active Substance: GIVOSIRAN SODIUM
     Indication: Porphyria acute
     Dosage: 107.95 MILLIGRAM, MONTHLY
     Route: 058
     Dates: start: 20210331, end: 20210331
  2. GIVLAARI [Suspect]
     Active Substance: GIVOSIRAN SODIUM
     Route: 065
     Dates: start: 20250315, end: 20250315

REACTIONS (11)
  - Nausea [Unknown]
  - Vomiting [Unknown]
  - Lethargy [Unknown]
  - Incoherent [Unknown]
  - Blood pressure fluctuation [Unknown]
  - Blood glucose decreased [Unknown]
  - Renal disorder [Unknown]
  - Weight decreased [Unknown]
  - Terminal state [Unknown]
  - Malaise [Unknown]
  - Intentional dose omission [Unknown]

NARRATIVE: CASE EVENT DATE: 20250325
